FAERS Safety Report 17192370 (Version 1)
Quarter: 2019Q4

REPORT INFORMATION
  Report Type: Report from Study
  Country: US (occurrence: US)
  Receive Date: 20191223
  Receipt Date: 20191223
  Transmission Date: 20200122
  Serious: Yes (Other)
  Sender: FDA-Public Use
  Company Number: US-ALEXION PHARMACEUTICALS INC.-A201919464

PATIENT
  Sex: Male

DRUGS (1)
  1. SOLIRIS [Suspect]
     Active Substance: ECULIZUMAB
     Indication: MYASTHENIA GRAVIS
     Dosage: 900 MG, Q2W
     Route: 042

REACTIONS (11)
  - Pyrexia [Unknown]
  - Haemophilus infection [Recovered/Resolved]
  - Infection [Recovered/Resolved]
  - Deafness unilateral [Unknown]
  - Influenza like illness [Unknown]
  - Ill-defined disorder [Unknown]
  - Balance disorder [Unknown]
  - Viral infection [Unknown]
  - Lower respiratory tract infection [Unknown]
  - Streptococcus test positive [Unknown]
  - Upper respiratory tract infection [Unknown]
